FAERS Safety Report 20710546 (Version 3)
Quarter: 2023Q2

REPORT INFORMATION
  Report Type: Report from Study
  Country: KR (occurrence: KR)
  Receive Date: 20220414
  Receipt Date: 20230424
  Transmission Date: 20230722
  Serious: Yes (Death, Other)
  Sender: FDA-Public Use
  Company Number: KP-GLAXOSMITHKLINE-KR2022GSK063675

PATIENT
  Age: 90 Year
  Sex: Male
  Weight: 60 kg

DRUGS (7)
  1. FLUTICASONE FUROATE\UMECLIDINIUM BROMIDE\VILANTEROL TRIFENATATE [Suspect]
     Active Substance: FLUTICASONE FUROATE\UMECLIDINIUM BROMIDE\VILANTEROL TRIFENATATE
     Indication: Chronic obstructive pulmonary disease
     Dosage: UNK, 1D, ORAL INHALATION
     Route: 055
     Dates: start: 20211111, end: 20220406
  2. LEVOFLOXACIN [Concomitant]
     Active Substance: LEVOFLOXACIN
     Indication: Chronic obstructive pulmonary disease
     Dosage: 1.5 MG, QD
     Route: 048
     Dates: start: 20211228, end: 20220111
  3. FOLIC ACID [Concomitant]
     Active Substance: FOLIC ACID
     Indication: Myelodysplastic syndrome
     Dosage: 1 DF, QID
     Route: 048
     Dates: start: 20220314, end: 20220403
  4. FOLIC ACID [Concomitant]
     Active Substance: FOLIC ACID
     Dosage: 1 UNK, QD
     Dates: start: 20180605
  5. DANAZOL [Concomitant]
     Active Substance: DANAZOL
     Indication: Myelodysplastic syndrome
     Dosage: 1 DF, QD
     Route: 048
     Dates: start: 20200723
  6. LEVOTHYROXINE SODIUM [Concomitant]
     Active Substance: LEVOTHYROXINE SODIUM
     Indication: Hypothyroidism
     Dosage: 1 DF, QD
     Route: 048
     Dates: start: 20200804
  7. BIOFLOR [Concomitant]
     Indication: Prophylaxis against diarrhoea
     Dosage: 1 DF, BID
     Route: 048
     Dates: start: 20211228, end: 20220111

REACTIONS (1)
  - Cardiac failure congestive [Fatal]

NARRATIVE: CASE EVENT DATE: 20220310
